FAERS Safety Report 7323565-9 (Version None)
Quarter: 2011Q1

REPORT INFORMATION
  Report Type: 
  Country: None (occurrence: None)
  Receive Date: 20110301
  Receipt Date: 20110216
  Transmission Date: 20110831
  Serious: Yes (Hospitalization)
  Sender: FDA-Public Use
  Company Number: IT-ELI_LILLY_AND_COMPANY-IT201101003089

PATIENT
  Sex: Male

DRUGS (4)
  1. RIVOTRIL [Concomitant]
  2. ALCOHOL [Concomitant]
  3. ZYPREXA [Suspect]
     Dosage: 20 D/F, UNK
     Route: 048
     Dates: start: 20110111, end: 20110111
  4. ZYPREXA [Suspect]
     Indication: DEPRESSION
     Dosage: 10 MG, UNK
     Route: 048
     Dates: start: 20110110, end: 20110111

REACTIONS (10)
  - BALANCE DISORDER [None]
  - OFF LABEL USE [None]
  - DYSARTHRIA [None]
  - FALL [None]
  - ALCOHOL ABUSE [None]
  - INTENTIONAL OVERDOSE [None]
  - BRADYKINESIA [None]
  - HEAD INJURY [None]
  - SYNCOPE [None]
  - FACE INJURY [None]
